FAERS Safety Report 8991020 (Version 2)
Quarter: 2013Q1

REPORT INFORMATION
  Report Type: Spontaneous
  Country: US (occurrence: None)
  Receive Date: 20121220
  Receipt Date: 20130122
  Transmission Date: 20140127
  Serious: Yes (Death, Hospitalization)
  Sender: FDA-Public Use
  Company Number: 2012-1520

PATIENT
  Age: 62 Year
  Sex: Female

DRUGS (1)
  1. KYPROLIS [Suspect]
     Indication: PLASMA CELL MYELOMA
     Dosage: (44 MG, ONCE), INTRAVENOUS
     Route: 042
     Dates: start: 20121001, end: 20121001

REACTIONS (7)
  - Platelet count decreased [None]
  - Cough [None]
  - Dyspnoea [None]
  - Renal failure acute [None]
  - Hypotension [None]
  - Cardiac arrest [None]
  - Neoplasm malignant [None]
